FAERS Safety Report 6022518-0 (Version None)
Quarter: 2008Q4

REPORT INFORMATION
  Report Type: 
  Country: None (occurrence: None)
  Receive Date: 20081230
  Receipt Date: 20081222
  Transmission Date: 20090506
  Serious: Yes (Hospitalization, Other)
  Sender: FDA-Public Use
  Company Number: US-BIOGENIDEC-2008BI020276

PATIENT
  Age: 52 Year
  Sex: Female

DRUGS (3)
  1. AVONEX [Suspect]
     Indication: MULTIPLE SCLEROSIS
     Route: 030
     Dates: start: 20030801
  2. AVONEX [Suspect]
     Route: 030
  3. AVONEX [Suspect]
     Route: 030
     Dates: start: 20020701, end: 20030701

REACTIONS (6)
  - CEREBRAL HAEMATOMA [None]
  - CONTUSION [None]
  - CONVULSION [None]
  - FALL [None]
  - SKULL FRACTURE [None]
  - SUBDURAL HAEMATOMA [None]
